FAERS Safety Report 9768888 (Version 1)
Quarter: 2013Q3

REPORT INFORMATION
  Report Type: Spontaneous
  Country: US (occurrence: None)
  Receive Date: 20130903
  Receipt Date: 20130903
  Transmission Date: 20140515
  Serious: Yes (Hospitalization)
  Sender: FDA-Public Use
  Company Number: 105488

PATIENT
  Age: 71 Year
  Sex: Male

DRUGS (1)
  1. CISPLATIN INJ. 50MG/50ML - BEDFORD LABS, INC. [Suspect]
     Indication: SQUAMOUS CELL CARCINOMA OF HEAD AND NECK
     Dates: start: 20100602

REACTIONS (4)
  - Dysphagia [None]
  - Nausea [None]
  - Vomiting [None]
  - Stomatitis [None]
